FAERS Safety Report 23145013 (Version 1)
Quarter: 2023Q4

REPORT INFORMATION
  Report Type: Spontaneous
  Country: US (occurrence: US)
  Receive Date: 20231103
  Receipt Date: 20231103
  Transmission Date: 20240110
  Serious: No
  Sender: FDA-Public Use
  Company Number: US-JNJFOC-20231018745

PATIENT
  Sex: Female

DRUGS (2)
  1. ZYRTEC [Suspect]
     Active Substance: CETIRIZINE HYDROCHLORIDE
     Indication: Urticaria chronic
     Dosage: 4 TIMES THE AMOUNT OR SOMETIMES 3 TIMES THE AMOUNT PRESCRIBED BY THE DOCTOR
     Route: 065
  2. ZYRTEC [Suspect]
     Active Substance: CETIRIZINE HYDROCHLORIDE
     Dosage: 4 TIMES THE AMOUNT OR SOMETIMES 3 TIMES THE AMOUNT PRESCRIBED BY THE DOCTOR
     Route: 065

REACTIONS (2)
  - Overdose [Unknown]
  - Off label use [Unknown]
